FAERS Safety Report 5477910-X (Version None)
Quarter: 2007Q4

REPORT INFORMATION
  Report Type: 
  Country: None (occurrence: None)
  Receive Date: 20071005
  Receipt Date: 20071002
  Transmission Date: 20080405
  Serious: Yes (Death, Other)
  Sender: FDA-Public Use
  Company Number: PHHO2007BR16282

PATIENT
  Age: 70 Year
  Sex: Male
  Weight: 73 kg

DRUGS (3)
  1. FORASEQ [Suspect]
     Indication: EMPHYSEMA
     Dosage: 12/400
     Route: 048
     Dates: start: 20070801
  2. ACETAMINOPHEN W/ CODEINE [Concomitant]
     Indication: PAIN IN EXTREMITY
  3. HYDROCHLOROTHIAZIDE [Concomitant]
     Indication: HYPERTENSION

REACTIONS (8)
  - ANOREXIA [None]
  - ASTHENIA [None]
  - CARDIOPULMONARY FAILURE [None]
  - DYSPNOEA [None]
  - FATIGUE [None]
  - HEART RATE INCREASED [None]
  - LUNG NEOPLASM MALIGNANT [None]
  - WEIGHT DECREASED [None]
